FAERS Safety Report 9308320 (Version 8)
Quarter: 2014Q2

REPORT INFORMATION
  Report Type: Spontaneous
  Country: IT (occurrence: IT)
  Receive Date: 20130524
  Receipt Date: 20140613
  Transmission Date: 20141212
  Serious: Yes (Hospitalization, Other)
  Sender: FDA-Public Use
  Company Number: IT-AMGEN-ITASP2013036474

PATIENT
  Age: 68 Year
  Sex: Male
  Weight: 81 kg

DRUGS (4)
  1. ARANESP [Suspect]
     Indication: PRODUCT USED FOR UNKNOWN INDICATION
     Dosage: 60 MUG, QWK
     Route: 058
     Dates: start: 20080902, end: 20130711
  2. ALLOPURINOL [Concomitant]
     Dosage: 150 MG, QOD
  3. TACROLIMUS [Concomitant]
     Dosage: UNK
     Dates: end: 20131202
  4. RAPAMYCIN [Concomitant]
     Dosage: 2 MG, QD

REACTIONS (6)
  - Aplasia pure red cell [Not Recovered/Not Resolved]
  - Therapeutic response decreased [Unknown]
  - Renal failure [Unknown]
  - Dyspnoea [Unknown]
  - Myelodysplastic syndrome [Unknown]
  - Myelofibrosis [Unknown]
